FAERS Safety Report 22614785 (Version 1)
Quarter: 2023Q2

REPORT INFORMATION
  Report Type: Spontaneous
  Country: JP (occurrence: JP)
  Receive Date: 20230619
  Receipt Date: 20230619
  Transmission Date: 20230721
  Serious: Yes (Other)
  Sender: FDA-Public Use
  Company Number: None

PATIENT
  Age: 1 Decade
  Sex: Female

DRUGS (14)
  1. DIAZEPAM [Suspect]
     Active Substance: DIAZEPAM
     Indication: Holoprosencephaly
     Dosage: 3 MILLIGRAM
     Route: 054
  2. DIAZEPAM [Suspect]
     Active Substance: DIAZEPAM
     Indication: Tonic convulsion
  3. LEVETIRACETAM [Suspect]
     Active Substance: LEVETIRACETAM
     Indication: Holoprosencephaly
     Dosage: 300 MILLIGRAM
     Route: 065
  4. LEVETIRACETAM [Suspect]
     Active Substance: LEVETIRACETAM
     Indication: Epilepsy
  5. PHENOBARBITAL [Suspect]
     Active Substance: PHENOBARBITAL
     Indication: Holoprosencephaly
     Dosage: 50 MILLIGRAM
     Route: 065
  6. PHENOBARBITAL [Suspect]
     Active Substance: PHENOBARBITAL
     Indication: Status epilepticus
  7. ZONISAMIDE [Suspect]
     Active Substance: ZONISAMIDE
     Indication: Holoprosencephaly
     Dosage: 60 MILLIGRAM
     Route: 065
  8. ZONISAMIDE [Suspect]
     Active Substance: ZONISAMIDE
     Indication: Epilepsy
  9. CLONAZEPAM [Suspect]
     Active Substance: CLONAZEPAM
     Indication: Tonic convulsion
     Dosage: 0.4 MILLIGRAM
     Route: 065
  10. CLONAZEPAM [Suspect]
     Active Substance: CLONAZEPAM
     Indication: Holoprosencephaly
  11. NITRAZEPAM [Suspect]
     Active Substance: NITRAZEPAM
     Indication: Holoprosencephaly
     Dosage: 1.2 MILLIGRAM
     Route: 065
  12. NITRAZEPAM [Suspect]
     Active Substance: NITRAZEPAM
     Indication: Tonic convulsion
     Dosage: 2 MILLIGRAM
     Route: 065
  13. CHLORAL HYDRATE [Concomitant]
     Active Substance: CHLORAL HYDRATE
     Indication: Tonic convulsion
     Dosage: UNK
     Route: 065
  14. CHLORAL HYDRATE [Concomitant]
     Active Substance: CHLORAL HYDRATE
     Indication: Holoprosencephaly

REACTIONS (3)
  - Loss of consciousness [Recovered/Resolved]
  - Somnolence [Recovered/Resolved]
  - Off label use [Unknown]
